FAERS Safety Report 6712041-X (Version None)
Quarter: 2010Q2

REPORT INFORMATION
  Report Type: 
  Country: None (occurrence: None)
  Receive Date: 20100505
  Receipt Date: 20100423
  Transmission Date: 20101027
  Serious: Yes (Other)
  Sender: FDA-Public Use
  Company Number: US-PFIZER INC-2010032972

PATIENT
  Sex: Female
  Weight: 83 kg

DRUGS (5)
  1. CHANTIX [Suspect]
     Indication: SMOKING CESSATION THERAPY
     Dosage: UNK
     Route: 048
     Dates: start: 20070101
  2. DILTIAZEM [Concomitant]
     Indication: HYPERTENSION
     Dosage: UNK, DAILY
  3. SIMVASTATIN [Concomitant]
     Indication: BLOOD CHOLESTEROL INCREASED
     Dosage: UNK
  4. WARFARIN [Concomitant]
     Dosage: 5 MG, DAILY
  5. FUROSEMIDE [Concomitant]
     Dosage: UNK, DAILY IN AM

REACTIONS (1)
  - WEIGHT DECREASED [None]
